FAERS Safety Report 13076077 (Version 2)
Quarter: 2017Q1

REPORT INFORMATION
  Report Type: Report from Study
  Country: US (occurrence: US)
  Receive Date: 20161230
  Receipt Date: 20170123
  Transmission Date: 20170428
  Serious: Yes (Hospitalization)
  Sender: FDA-Public Use
  Company Number: US-CORCEPT THERAPEUTICS INC.-US-2016CRT000802

PATIENT

DRUGS (2)
  1. KORLYM [Suspect]
     Active Substance: MIFEPRISTONE
     Indication: CUSHING^S SYNDROME
     Dosage: 300 MG, QD
     Route: 048
     Dates: start: 20161108, end: 20161122
  2. KORLYM [Suspect]
     Active Substance: MIFEPRISTONE
     Dosage: 600 MG, QD
     Route: 048
     Dates: start: 20161123, end: 201612

REACTIONS (8)
  - Abdominal pain [Not Recovered/Not Resolved]
  - Bronchitis [Recovering/Resolving]
  - Rectal haemorrhage [Recovering/Resolving]
  - Dehydration [Unknown]
  - Vomiting [Not Recovered/Not Resolved]
  - Gastric ulcer haemorrhage [Recovering/Resolving]
  - Haematemesis [Recovering/Resolving]
  - Dermal cyst [Recovered/Resolved]

NARRATIVE: CASE EVENT DATE: 2016
